FAERS Safety Report 9184802 (Version 4)
Quarter: 2013Q4

REPORT INFORMATION
  Report Type: Report from Study
  Country: SK (occurrence: SK)
  Receive Date: 20130325
  Receipt Date: 20131001
  Transmission Date: 20140711
  Serious: Yes (Hospitalization, Disabling)
  Sender: FDA-Public Use
  Company Number: SK-JNJFOC-20130310162

PATIENT
  Age: 60 Year
  Sex: Male
  Weight: 72 kg

DRUGS (2)
  1. USTEKINUMAB [Suspect]
     Indication: PSORIASIS
     Route: 058
     Dates: start: 20110525
  2. CORTICOSTEROIDS [Concomitant]

REACTIONS (1)
  - Ischaemic stroke [Recovered/Resolved with Sequelae]
